FAERS Safety Report 11556789 (Version 2)
Quarter: 2015Q4

REPORT INFORMATION
  Report Type: Spontaneous
  Country: FR (occurrence: FR)
  Receive Date: 20150925
  Receipt Date: 20151012
  Transmission Date: 20160304
  Serious: Yes (Other)
  Sender: FDA-Public Use
  Company Number: PHHY2015FR116072

PATIENT
  Age: 10 Year
  Sex: Male

DRUGS (1)
  1. CARBAMAZEPINE. [Suspect]
     Active Substance: CARBAMAZEPINE
     Indication: EPILEPSY
     Route: 065

REACTIONS (4)
  - Gait disturbance [Recovering/Resolving]
  - Musculoskeletal deformity [Recovering/Resolving]
  - Rickets [Recovering/Resolving]
  - Hypocalcaemia [Recovered/Resolved]
